FAERS Safety Report 13258792 (Version 4)
Quarter: 2017Q1

REPORT INFORMATION
  Report Type: Report from Study
  Country: CN (occurrence: CN)
  Receive Date: 20170222
  Receipt Date: 20170313
  Transmission Date: 20170428
  Serious: Yes (Life-Threatening, Hospitalization)
  Sender: FDA-Public Use
  Company Number: CN-AMGEN-CHNCT2016141238

PATIENT
  Age: 68 Year
  Sex: Male
  Weight: 64.5 kg

DRUGS (27)
  1. VITAMIN B6 [Concomitant]
     Active Substance: PYRIDOXINE HYDROCHLORIDE
     Indication: FLUID RETENTION
     Dosage: 200 MG, UNK
     Dates: start: 20160831, end: 20160929
  2. METOCLOPRAMIDE. [Concomitant]
     Active Substance: METOCLOPRAMIDE
     Indication: NAUSEA
     Dosage: 10 MG, UNK
     Dates: start: 20160927, end: 20160929
  3. METOCLOPRAMIDE. [Concomitant]
     Active Substance: METOCLOPRAMIDE
     Indication: VOMITING
  4. ATORVASTATIN CALCIUM. [Concomitant]
     Active Substance: ATORVASTATIN CALCIUM
     Indication: CORONARY ARTERY STENOSIS
     Dosage: 1 UNK, UNK
     Dates: start: 2013
  5. CALCIUM [Concomitant]
     Active Substance: CALCIUM
     Indication: FLUID RETENTION
     Dosage: 10 TO 500 ML, UNK
     Dates: start: 20160927, end: 20161017
  6. MIGLITOL. [Concomitant]
     Active Substance: MIGLITOL
     Indication: DIABETES MELLITUS
     Dosage: 0.5-1 UNK, UNK
     Route: 048
     Dates: start: 2001
  7. CANDESARTAN CILEXETIL. [Concomitant]
     Active Substance: CANDESARTAN CILEXETIL
     Indication: HYPERTENSION
     Dosage: 0.5 UNK, UNK
     Dates: start: 2008, end: 20160906
  8. CARBOPLATIN. [Concomitant]
     Active Substance: CARBOPLATIN
     Dosage: 400-625 MG, UNK
     Dates: start: 20160608, end: 20160927
  9. GLUCOSE [Concomitant]
     Active Substance: DEXTROSE
     Indication: HYPOGLYCAEMIA
  10. GLIMEPIRIDE. [Concomitant]
     Active Substance: GLIMEPIRIDE
     Indication: DIABETES MELLITUS
     Dosage: 1 UNK, UNK
     Dates: start: 2001
  11. POTASSIUM [Concomitant]
     Active Substance: POTASSIUM
     Indication: FLUID RETENTION
     Dosage: 500 ML, UNK
     Dates: start: 20160927, end: 20160929
  12. DARBEPOETIN ALFA [Suspect]
     Active Substance: DARBEPOETIN ALFA
     Indication: ANAEMIA OF MALIGNANT DISEASE
     Dosage: UNK
     Route: 065
     Dates: start: 20160906, end: 20160923
  13. TROPISETRON [Concomitant]
     Active Substance: TROPISETRON
     Indication: NAUSEA
     Dosage: 5 MG, UNK
     Dates: start: 20160831, end: 20160929
  14. PANTOPRAZOLE SODIUM. [Concomitant]
     Active Substance: PANTOPRAZOLE SODIUM
     Indication: NAUSEA
     Dosage: 20 MG, UNK
     Dates: start: 20160831, end: 20160929
  15. PANTOPRAZOLE SODIUM. [Concomitant]
     Active Substance: PANTOPRAZOLE SODIUM
     Indication: VOMITING
  16. MAGNESIUM [Concomitant]
     Active Substance: MAGNESIUM
     Indication: FLUID RETENTION
     Dosage: 500 ML, UNK
     Dates: start: 20160927, end: 20160929
  17. GLUCOSE [Concomitant]
     Active Substance: DEXTROSE
     Indication: FLUID RETENTION
     Dosage: 20-500 ML, UNK
     Route: 042
     Dates: start: 20160927, end: 20161025
  18. TROPISETRON [Concomitant]
     Active Substance: TROPISETRON
     Indication: VOMITING
  19. SUCRALFATE. [Concomitant]
     Active Substance: SUCRALFATE
     Indication: PROPHYLAXIS
     Dosage: 10 ML, UNK
     Dates: start: 20160830, end: 20160928
  20. METOPROLOL SUCCINATE. [Concomitant]
     Active Substance: METOPROLOL SUCCINATE
     Indication: CORONARY ARTERY STENOSIS
     Dosage: 1 UNK, UNK
     Dates: start: 2013
  21. INSULIN [Concomitant]
     Active Substance: INSULIN NOS
     Indication: DIABETES MELLITUS
     Dosage: 6-8 UNK, UNK
     Dates: start: 20160831, end: 20160927
  22. DEXAMETHASONE ACETATE [Concomitant]
     Active Substance: DEXAMETHASONE ACETATE
     Indication: IRRITABILITY
     Dosage: 4 MG, UNK
     Dates: start: 20160926, end: 20160928
  23. ASPIRIN. [Concomitant]
     Active Substance: ASPIRIN
     Indication: CORONARY ARTERY STENOSIS
     Dosage: 1 UNK, UNK
     Dates: start: 2013, end: 20160906
  24. PEMETREXED [Concomitant]
     Active Substance: PEMETREXED
     Dosage: 800-900 MG, UNK
     Dates: start: 20160608, end: 20170127
  25. SODIUM [Concomitant]
     Active Substance: SODIUM
     Indication: FLUID RETENTION
     Dosage: 500 ML, UNK
     Dates: start: 20160927, end: 20160929
  26. APREPITANT. [Concomitant]
     Active Substance: APREPITANT
     Indication: VOMITING
     Dosage: 80-125 MG, UNK
     Dates: start: 20160927, end: 20160928
  27. METFORMIN HYDROCHLORIDE. [Concomitant]
     Active Substance: METFORMIN HYDROCHLORIDE
     Indication: DIABETES MELLITUS
     Dosage: 1 UNK, UNK
     Route: 048
     Dates: start: 2001

REACTIONS (3)
  - Bone marrow failure [Recovered/Resolved]
  - Hypoglycaemia [Recovered/Resolved]
  - Lung infection [Recovered/Resolved]

NARRATIVE: CASE EVENT DATE: 20161010
